FAERS Safety Report 18085851 (Version 1)
Quarter: 2020Q3

REPORT INFORMATION
  Report Type: Report from Study
  Country: US (occurrence: US)
  Receive Date: 20200729
  Receipt Date: 20200729
  Transmission Date: 20201103
  Serious: Yes (Other)
  Sender: FDA-Public Use
  Company Number: US-GLAXOSMITHKLINE-US2020AMR141435

PATIENT
  Age: 45 Year
  Sex: Male

DRUGS (1)
  1. MEPOLIZUMAB [Suspect]
     Active Substance: MEPOLIZUMAB
     Indication: ASTHMA
     Dosage: UNK

REACTIONS (5)
  - Asthma [Unknown]
  - Product use in unapproved indication [Unknown]
  - Off label use [Unknown]
  - Diabetes mellitus [Unknown]
  - Hypertension [Unknown]
